FAERS Safety Report 16395974 (Version 1)
Quarter: 2019Q2

REPORT INFORMATION
  Report Type: Other
  Country: IN (occurrence: IN)
  Receive Date: 20190605
  Receipt Date: 20190605
  Transmission Date: 20190711
  Serious: Yes (Life-Threatening, Hospitalization)
  Sender: FDA-Public Use
  Company Number: IN-NOSTRUM LABORATORIES, INC.-2067833

PATIENT
  Age: 35 Year
  Sex: Female

DRUGS (2)
  1. DAPSONE. [Suspect]
     Active Substance: DAPSONE
     Indication: TUBERCULOID LEPROSY
     Route: 048
  2. RIFAMPICIN FROM AN UNKNOWN MANUFACTURER [Concomitant]

REACTIONS (3)
  - Drug reaction with eosinophilia and systemic symptoms [Recovered/Resolved]
  - Blood loss anaemia [Unknown]
  - Drug-induced liver injury [Unknown]
